FAERS Safety Report 24001114 (Version 1)
Quarter: 2024Q2

REPORT INFORMATION
  Report Type: Report from Study
  Country: TW (occurrence: TW)
  Receive Date: 20240621
  Receipt Date: 20240621
  Transmission Date: 20240716
  Serious: Yes (Other)
  Sender: FDA-Public Use
  Company Number: TW-JNJFOC-20240635996

PATIENT

DRUGS (2)
  1. RYBREVANT [Suspect]
     Active Substance: AMIVANTAMAB-VMJW
     Indication: Lung neoplasm malignant
     Route: 042
  2. TAGRISSO [Concomitant]
     Active Substance: OSIMERTINIB

REACTIONS (3)
  - Shock [Unknown]
  - Anaphylactic reaction [Unknown]
  - Pyrexia [Unknown]
